FAERS Safety Report 23836486 (Version 2)
Quarter: 2024Q2

REPORT INFORMATION
  Report Type: Other
  Country: US (occurrence: None)
  Receive Date: 20240509
  Receipt Date: 20240515
  Transmission Date: 20240716
  Serious: No
  Sender: FDA-Public Use
  Company Number: US-ROCHE-3558102

PATIENT
  Age: 31 Year
  Sex: Female
  Weight: 86.6 kg

DRUGS (1)
  1. OCREVUS [Suspect]
     Active Substance: OCRELIZUMAB
     Indication: Multiple sclerosis
     Route: 042

REACTIONS (5)
  - JC polyomavirus test positive [Unknown]
  - Mean cell haemoglobin concentration decreased [Unknown]
  - Paraesthesia [Unknown]
  - Burning sensation [Unknown]
  - Multiple sclerosis [Unknown]
